FAERS Safety Report 5491190-0 (Version None)
Quarter: 2007Q4

REPORT INFORMATION
  Report Type: 
  Country: None (occurrence: None)
  Receive Date: 20071019
  Receipt Date: 20071011
  Transmission Date: 20080405
  Serious: Yes (Other)
  Sender: FDA-Public Use
  Company Number: FR-PFIZER INC-2007085996

PATIENT
  Age: 65 Year
  Sex: Male

DRUGS (2)
  1. TAHOR [Suspect]
     Indication: DYSLIPIDAEMIA
     Dates: start: 20020101, end: 20070701
  2. CASODEX [Suspect]
     Indication: PROSTATE CANCER
     Dates: start: 20070101, end: 20070101

REACTIONS (3)
  - CELL DEATH [None]
  - PROSTATE CANCER [None]
  - TRANSAMINASES INCREASED [None]
